FAERS Safety Report 20870129 (Version 1)
Quarter: 2022Q2

REPORT INFORMATION
  Report Type: Spontaneous
  Country: US (occurrence: US)
  Receive Date: 20220525
  Receipt Date: 20220525
  Transmission Date: 20220720
  Serious: No
  Sender: FDA-Public Use
  Company Number: US-BRISTOL-MYERS SQUIBB COMPANY-2022-030484

PATIENT
  Age: 62 Year
  Sex: Male

DRUGS (1)
  1. POMALYST [Suspect]
     Active Substance: POMALIDOMIDE
     Indication: Constipation
     Dosage: FREQUENCY: EVERY DAY ON DAYS 21 OF EACH 28 DAY CYCLE.
     Route: 048

REACTIONS (1)
  - Intentional product use issue [Unknown]
